FAERS Safety Report 5762655-9 (Version None)
Quarter: 2008Q2

REPORT INFORMATION
  Report Type: 
  Country: None (occurrence: None)
  Receive Date: 20080609
  Receipt Date: 20080430
  Transmission Date: 20081010
  Serious: No
  Sender: FDA-Public Use
  Company Number: SE-AVENTIS-200716607GDDC

PATIENT
  Age: 27 Year
  Sex: Female

DRUGS (4)
  1. ARAVA [Suspect]
     Route: 048
     Dates: start: 20041201, end: 20061101
  2. KETOPROFEN [Suspect]
     Route: 048
     Dates: start: 20061113, end: 20070621
  3. PREDNISONE TAB [Suspect]
     Route: 048
     Dates: start: 20061006
  4. REMICADE [Suspect]
     Route: 042
     Dates: start: 20070129, end: 20070702

REACTIONS (1)
  - DRUG EXPOSURE DURING PREGNANCY [None]
